FAERS Safety Report 5615549-3 (Version None)
Quarter: 2008Q1

REPORT INFORMATION
  Report Type: 
  Country: None (occurrence: None)
  Receive Date: 20080201
  Receipt Date: 20080117
  Transmission Date: 20080703
  Serious: Yes (Hospitalization)
  Sender: FDA-Public Use
  Company Number: 2008BM000006

PATIENT
  Age: 9 Year
  Sex: Female
  Weight: 20 kg

DRUGS (5)
  1. NAGLAZYME [Suspect]
     Indication: MUCOPOLYSACCHARIDOSIS VI
     Dosage: 5MG; IV, 15 MG; IV
     Route: 042
     Dates: start: 20061001, end: 20070919
  2. NAGLAZYME [Suspect]
     Indication: MUCOPOLYSACCHARIDOSIS VI
     Dosage: 5MG; IV, 15 MG; IV
     Route: 042
     Dates: start: 20071205, end: 20071205
  3. DIMETINDENE MALEATE [Concomitant]
  4. PREDNISOLONE [Concomitant]
  5. RANITIDINE [Concomitant]

REACTIONS (6)
  - ANAPHYLACTIC REACTION [None]
  - ANAPHYLACTOID REACTION [None]
  - COUGH [None]
  - HYPERSENSITIVITY [None]
  - HYPERTENSION [None]
  - INFUSION RELATED REACTION [None]
